FAERS Safety Report 7406363-7 (Version None)
Quarter: 2011Q2

REPORT INFORMATION
  Report Type: 
  Country: None (occurrence: None)
  Receive Date: 20110411
  Receipt Date: 20110331
  Transmission Date: 20111010
  Serious: Yes (Hospitalization)
  Sender: FDA-Public Use
  Company Number: JP-AMGEN-JPNSP2011018700

PATIENT
  Age: 40 Year
  Sex: Male

DRUGS (2)
  1. REGPARA [Suspect]
     Indication: HYPERPARATHYROIDISM SECONDARY
     Dosage: 50 MG, QD
     Route: 048
  2. OMEPRAZOLE [Concomitant]
     Dosage: UNK

REACTIONS (1)
  - ILEUS [None]
